FAERS Safety Report 17464362 (Version 1)
Quarter: 2020Q1

REPORT INFORMATION
  Report Type: Spontaneous
  Country: DE (occurrence: DE)
  Receive Date: 20200226
  Receipt Date: 20200226
  Transmission Date: 20200409
  Serious: Yes (Hospitalization, Other)
  Sender: FDA-Public Use
  Company Number: DE-009507513-2004-04-0005

PATIENT
  Age: 24 Year
  Sex: Male
  Weight: 67 kg

DRUGS (2)
  1. PEGINTRON [Suspect]
     Active Substance: PEGINTERFERON ALFA-2B
     Indication: HEPATITIS C
     Dosage: DOSE: QWK
     Route: 058
     Dates: start: 200307
  2. REBETOL [Suspect]
     Active Substance: RIBAVIRIN
     Indication: HEPATITIS C
     Dosage: DOSE: 200 MG QD
     Route: 048
     Dates: start: 200307

REACTIONS (2)
  - Hypersensitivity pneumonitis [Recovering/Resolving]
  - Bronchopulmonary aspergillosis allergic [Recovering/Resolving]

NARRATIVE: CASE EVENT DATE: 20040322
